FAERS Safety Report 21249695 (Version 1)
Quarter: 2022Q3

REPORT INFORMATION
  Report Type: Spontaneous
  Country: US (occurrence: None)
  Receive Date: 20220824
  Receipt Date: 20220824
  Transmission Date: 20221027
  Serious: Yes (Life-Threatening, Hospitalization, Disabling)
  Sender: FDA-Public Use
  Company Number: None

PATIENT
  Age: 32 Year
  Sex: Male
  Weight: 99.79 kg

DRUGS (7)
  1. FLUVOXAMINE MALEATE EXTENDED-RELEASE [Suspect]
     Active Substance: FLUVOXAMINE MALEATE
     Indication: Obsessive-compulsive disorder
     Dosage: FREQUENCY : TWICE A DAY;?
     Route: 048
     Dates: start: 2014
  2. SYNTHROID [Concomitant]
     Active Substance: LEVOTHYROXINE SODIUM
  3. ATENOLOL [Concomitant]
     Active Substance: ATENOLOL
  4. LAMICTAL XR [Concomitant]
     Active Substance: LAMOTRIGINE
  5. CLONAZEPAM [Concomitant]
     Active Substance: CLONAZEPAM
  6. FLUVOXAMINE [Concomitant]
     Active Substance: FLUVOXAMINE
  7. FLUVOXAMINE [Concomitant]
     Active Substance: FLUVOXAMINE

REACTIONS (4)
  - Suicide attempt [None]
  - Photophobia [None]
  - Product substitution issue [None]
  - Drug ineffective [None]

NARRATIVE: CASE EVENT DATE: 20130101
